FAERS Safety Report 9394436 (Version 2)
Quarter: 2013Q3

REPORT INFORMATION
  Report Type: Spontaneous
  Country: US (occurrence: US)
  Receive Date: 20130711
  Receipt Date: 20130801
  Transmission Date: 20140515
  Serious: No
  Sender: FDA-Public Use
  Company Number: US-PFIZER INC-2013203714

PATIENT
  Age: 60 Year
  Sex: Male
  Weight: 83.4 kg

DRUGS (5)
  1. CHANTIX [Suspect]
     Indication: SMOKING CESSATION THERAPY
     Dosage: 0.5 MG DAILY
     Dates: start: 20130613, end: 2013
  2. CHANTIX [Suspect]
     Dosage: UNK
     Dates: start: 2013
  3. HUMIRA [Concomitant]
     Indication: ARTHRITIS
     Dosage: UNK, EVERY 2 WEEKS
  4. NAPROXEN [Concomitant]
     Indication: ARTHRITIS
     Dosage: 500 MG DAILY
  5. ASPIRIN [Concomitant]
     Indication: ANTICOAGULANT THERAPY
     Dosage: 81 MG DAILY

REACTIONS (3)
  - Rash [Not Recovered/Not Resolved]
  - Pain in extremity [Not Recovered/Not Resolved]
  - Dry skin [Not Recovered/Not Resolved]
